FAERS Safety Report 9817101 (Version 1)
Quarter: 2014Q1

REPORT INFORMATION
  Report Type: Spontaneous
  Country: IT (occurrence: IT)
  Receive Date: 20140114
  Receipt Date: 20140114
  Transmission Date: 20141002
  Serious: Yes (Other)
  Sender: FDA-Public Use
  Company Number: PHHY2014IT003072

PATIENT
  Age: 62 Year
  Sex: Female

DRUGS (1)
  1. COMBISARTAN [Suspect]
     Indication: HYPERTENSION
     Dosage: 2 DF (160MG VALS, 12.5 MG HYDR), DAILY
     Route: 048
     Dates: start: 20131101

REACTIONS (3)
  - Presyncope [Recovering/Resolving]
  - Head injury [Recovering/Resolving]
  - Wound [Recovering/Resolving]
